FAERS Safety Report 23349621 (Version 4)
Quarter: 2024Q1

REPORT INFORMATION
  Report Type: Spontaneous
  Country: US (occurrence: US)
  Receive Date: 20231229
  Receipt Date: 20240125
  Transmission Date: 20240410
  Serious: Yes (Other)
  Sender: FDA-Public Use
  Company Number: US-862174955-ML2023-07460

PATIENT
  Age: 46 Year
  Sex: Female

DRUGS (2)
  1. CROMOLYN SODIUM [Suspect]
     Active Substance: CROMOLYN SODIUM
     Indication: Mast cell activation syndrome
     Dosage: STRENGTH: 100 MG/5 ML?DOSE: 02 AMPULES
     Route: 048
     Dates: start: 20230911
  2. CROMOLYN SODIUM [Concomitant]
     Active Substance: CROMOLYN SODIUM
     Indication: Mast cell activation syndrome

REACTIONS (19)
  - Renal failure [Unknown]
  - Anaphylactic reaction [Recovered/Resolved]
  - Migraine [Recovering/Resolving]
  - Dysgeusia [Recovering/Resolving]
  - Disorientation [Recovering/Resolving]
  - Pharyngeal swelling [Recovering/Resolving]
  - Asthma [Recovering/Resolving]
  - Gastrointestinal disorder [Not Recovered/Not Resolved]
  - Cognitive disorder [Unknown]
  - Behaviour disorder [Unknown]
  - Emotional distress [Unknown]
  - Illness [Unknown]
  - Condition aggravated [Unknown]
  - Dyspnoea [Recovering/Resolving]
  - Impaired quality of life [Unknown]
  - Constipation [Recovering/Resolving]
  - Pruritus [Recovering/Resolving]
  - Malaise [Recovering/Resolving]
  - Product quality issue [Unknown]
